FAERS Safety Report 6570456-7 (Version None)
Quarter: 2010Q1

REPORT INFORMATION
  Report Type: 
  Country: None (occurrence: None)
  Receive Date: 20100204
  Receipt Date: 20090828
  Transmission Date: 20100710
  Serious: Yes (Hospitalization, Other)
  Sender: FDA-Public Use
  Company Number: A0796657A

PATIENT
  Age: 85 Year
  Sex: Male
  Weight: 80.9 kg

DRUGS (7)
  1. ARIXTRA [Suspect]
     Indication: DRUG USE FOR UNKNOWN INDICATION
     Dosage: 2.5MG PER DAY
     Route: 058
     Dates: start: 20090610, end: 20090615
  2. TESSALON [Concomitant]
  3. NEURONTIN [Concomitant]
  4. AMBIEN [Concomitant]
  5. ACETAMINOPHEN [Concomitant]
  6. CALCIUM + D [Concomitant]
  7. MULTI-VITAMIN [Concomitant]

REACTIONS (4)
  - ABDOMINAL WALL HAEMATOMA [None]
  - ECCHYMOSIS [None]
  - HAEMORRHAGE [None]
  - RETROPERITONEAL HAEMORRHAGE [None]
